FAERS Safety Report 9136800 (Version 1)
Quarter: 2013Q1

REPORT INFORMATION
  Report Type: Spontaneous
  Country: US (occurrence: US)
  Receive Date: 20130304
  Receipt Date: 20130304
  Transmission Date: 20140127
  Serious: No
  Sender: FDA-Public Use
  Company Number: US-ABBOTT-13P-163-1037594-00

PATIENT
  Age: 71 Year
  Sex: Male

DRUGS (1)
  1. ANDROGEL [Suspect]
     Indication: BLOOD TESTOSTERONE DECREASED
     Dosage: 3 PUMPS DAILY. APPLIES TO UPPER SHOULDERS
     Dates: start: 2012

REACTIONS (5)
  - Acrochordon [Not Recovered/Not Resolved]
  - Pruritus [Recovered/Resolved]
  - Acne [Unknown]
  - Dermatitis contact [Unknown]
  - Urinary hesitation [Unknown]
